FAERS Safety Report 9624431 (Version 1)
Quarter: 2013Q4

REPORT INFORMATION
  Report Type: Spontaneous
  Country: BR (occurrence: BR)
  Receive Date: 20131015
  Receipt Date: 20131015
  Transmission Date: 20140711
  Serious: Yes (Other)
  Sender: FDA-Public Use
  Company Number: PHHY2013BR115462

PATIENT
  Age: 3 Year
  Sex: Male

DRUGS (1)
  1. TRILEPTAL [Suspect]
     Indication: CONVULSION
     Dosage: UNK UKN, BID
     Route: 048
     Dates: start: 20130911

REACTIONS (2)
  - Haemorrhage [Not Recovered/Not Resolved]
  - Rhinitis [Unknown]
